FAERS Safety Report 8415823-1 (Version None)
Quarter: 2012Q2

REPORT INFORMATION
  Report Type: 
  Country: None (occurrence: None)
  Receive Date: 20120530
  Receipt Date: 20120521
  Transmission Date: 20120825
  Serious: Yes (Other)
  Sender: FDA-Public Use
  Company Number: 2012MA002871

PATIENT
  Age: 72 Year
  Sex: Female

DRUGS (1)
  1. MICONAZOLE NITRATE [Suspect]
     Indication: VULVOVAGINAL DISCOMFORT
     Dosage: 2 PCT;HS;VAG
     Route: 067
     Dates: start: 20120302, end: 20120305

REACTIONS (2)
  - URINARY TRACT INFECTION [None]
  - HAEMORRHAGE [None]
